FAERS Safety Report 14612858 (Version 1)
Quarter: 2018Q1

REPORT INFORMATION
  Report Type: Spontaneous
  Country: US (occurrence: US)
  Receive Date: 20180307
  Receipt Date: 20180307
  Transmission Date: 20180509
  Serious: No
  Sender: FDA-Public Use
  Company Number: None

PATIENT

DRUGS (3)
  1. ATORVASTATIN 10MG [Suspect]
     Active Substance: ATORVASTATIN
  2. ROSUVASTATIN 10 MG [Concomitant]
  3. SIMVASTATIN 10MG [Concomitant]
     Active Substance: SIMVASTATIN

REACTIONS (2)
  - Myalgia [None]
  - Product substitution issue [None]
